FAERS Safety Report 22319783 (Version 1)
Quarter: 2023Q2

REPORT INFORMATION
  Report Type: Spontaneous
  Country: US (occurrence: None)
  Receive Date: 20230512
  Receipt Date: 20230512
  Transmission Date: 20230722
  Serious: Yes (Hospitalization)
  Sender: FDA-Public Use
  Company Number: None

PATIENT
  Age: 74 Year
  Sex: Female
  Weight: 90.63 kg

DRUGS (15)
  1. CAPECITABINE [Suspect]
     Active Substance: CAPECITABINE
     Indication: Breast cancer female
     Dosage: FREQUENCY : TWICE A DAY;?
     Route: 048
  2. CAPECITABINE [Suspect]
     Active Substance: CAPECITABINE
     Indication: Breast cancer female
     Dosage: FREQUENCY : TWICE A DAY;?
     Route: 048
  3. ASPIRIN LOW [Concomitant]
  4. BENADRYL [Concomitant]
     Active Substance: DIPHENHYDRAMINE HYDROCHLORIDE
  5. CHLORTHALIDONE [Concomitant]
  6. GABAPENTIN [Concomitant]
     Active Substance: GABAPENTIN
  7. NORCO [Concomitant]
  8. LOSARTAN [Concomitant]
  9. METOPROLOL [Concomitant]
     Active Substance: METOPROLOL
  10. ONDANETRON [Concomitant]
  11. PENICILLIN V POTASSIUM [Concomitant]
  12. PRAVASTATIN [Concomitant]
  13. PROAIR HFA [Concomitant]
  14. VITAMIN B12 ER [Concomitant]
  15. VIT D [Concomitant]

REACTIONS (2)
  - Pyrexia [None]
  - Pain [None]
